FAERS Safety Report 6376105-5 (Version None)
Quarter: 2009Q3

REPORT INFORMATION
  Report Type: 
  Country: None (occurrence: None)
  Receive Date: 20090921
  Receipt Date: 20090909
  Transmission Date: 20100115
  Serious: Yes (Hospitalization, Other)
  Sender: FDA-Public Use
  Company Number: 230057J09BRA

PATIENT
  Age: 33 Year
  Sex: Male

DRUGS (1)
  1. REBIF [Suspect]
     Indication: PRIMARY PROGRESSIVE MULTIPLE SCLEROSIS
     Dosage: 22 MCG, 3 IN 1 WEEKS
     Dates: start: 20060815, end: 20090826

REACTIONS (6)
  - DEPRESSED MOOD [None]
  - GAIT DISTURBANCE [None]
  - IMMUNODEFICIENCY [None]
  - SENSATION OF HEAVINESS [None]
  - SUICIDE ATTEMPT [None]
  - URINARY TRACT INFECTION [None]
